FAERS Safety Report 5152133-2 (Version None)
Quarter: 2006Q4

REPORT INFORMATION
  Report Type: 
  Country: None (occurrence: None)
  Receive Date: 20061114
  Receipt Date: 20061114
  Transmission Date: 20070319
  Serious: Yes (Death, Life-Threatening, Hospitalization, Other)
  Sender: FDA-Public Use
  Company Number: None

PATIENT
  Age: 53 Year
  Sex: Female
  Weight: 72.1219 kg

DRUGS (8)
  1. MIRAPEX [Suspect]
     Indication: RESTLESS LEGS SYNDROME
     Dosage: ONE AT BED PO
     Route: 048
     Dates: start: 20040101, end: 20061112
  2. DEPAKOTE [Suspect]
     Indication: BIPOLAR DISORDER
     Dosage: TWO AT BED PO
     Route: 048
     Dates: start: 20040101, end: 20061112
  3. SEROQUEL [Concomitant]
  4. GEODON [Concomitant]
  5. RESPEDAL [Concomitant]
  6. ZIPREXA [Concomitant]
  7. AMBIEN [Concomitant]
  8. AMBILIFY [Concomitant]

REACTIONS (1)
  - TARDIVE DYSKINESIA [None]
